FAERS Safety Report 5804704-5 (Version None)
Quarter: 2008Q3

REPORT INFORMATION
  Report Type: 
  Country: None (occurrence: None)
  Receive Date: 20080709
  Receipt Date: 20080703
  Transmission Date: 20090109
  Serious: Yes (Disabling)
  Sender: FDA-Public Use
  Company Number: CA-MERCK-0805CAN00053

PATIENT
  Age: 47 Year
  Sex: Male
  Weight: 80 kg

DRUGS (4)
  1. ISENTRESS [Suspect]
     Indication: BLOOD HIV RNA
     Route: 048
     Dates: start: 20080505
  2. TENOFOVIR [Concomitant]
     Indication: BLOOD HIV RNA
     Route: 065
     Dates: start: 20050305
  3. LAMIVUDINE [Concomitant]
     Indication: BLOOD HIV RNA
     Route: 065
     Dates: start: 20080505
  4. FUZEON [Concomitant]
     Indication: BLOOD HIV RNA
     Route: 065
     Dates: start: 20050314

REACTIONS (5)
  - ARTHRALGIA [None]
  - ERYTHEMA [None]
  - INFLUENZA LIKE ILLNESS [None]
  - MYALGIA [None]
  - PRURITUS [None]
